FAERS Safety Report 4476904-0 (Version None)
Quarter: 2004Q4

REPORT INFORMATION
  Report Type: 
  Country: None (occurrence: None)
  Receive Date: 20041012
  Receipt Date: 20040929
  Transmission Date: 20050328
  Serious: Yes (Death)
  Sender: FDA-Public Use
  Company Number: 8005783

PATIENT
  Age: 87 Year
  Sex: Female

DRUGS (9)
  1. KEPPRA [Suspect]
     Indication: STATUS EPILEPTICUS
     Dosage: 500 MG 2/D PO
     Route: 048
     Dates: start: 20040101, end: 20040201
  2. DILANTIN [Suspect]
     Dosage: 100 MG 2/D PO
     Route: 048
     Dates: start: 20040101, end: 20040101
  3. DILANTIN [Suspect]
     Dosage: PO
     Route: 048
     Dates: start: 20040101, end: 20040101
  4. TENORMIN [Concomitant]
  5. NORVASC [Concomitant]
  6. INSULIN [Concomitant]
  7. GLUCOTROL [Concomitant]
  8. MULTI-VITAMINS [Concomitant]
  9. ACYCLOVIR [Concomitant]

REACTIONS (6)
  - BLOOD GLUCOSE INCREASED [None]
  - ENCEPHALOPATHY [None]
  - GENERAL PHYSICAL HEALTH DETERIORATION [None]
  - HEPATIC FAILURE [None]
  - RASH [None]
  - SEPSIS [None]
